FAERS Safety Report 7905302-X (Version None)
Quarter: 2011Q4

REPORT INFORMATION
  Report Type: 
  Country: None (occurrence: None)
  Receive Date: 20111109
  Receipt Date: 20111013
  Transmission Date: 20120403
  Serious: Yes (Other)
  Sender: FDA-Public Use
  Company Number: PHEH2011US06742

PATIENT
  Age: 57 Year
  Sex: Female

DRUGS (1)
  1. GLEEVEC [Suspect]
     Dosage: UNK
     Route: 065
     Dates: start: 20110101, end: 20110501

REACTIONS (6)
  - ABDOMINAL DISCOMFORT [None]
  - FLATULENCE [None]
  - HEPATIC LESION [None]
  - GASTROINTESTINAL STROMAL TUMOUR [None]
  - DRUG INTOLERANCE [None]
  - DIARRHOEA [None]
